FAERS Safety Report 24997702 (Version 1)
Quarter: 2025Q1

REPORT INFORMATION
  Report Type: Spontaneous
  Country: GB (occurrence: GB)
  Receive Date: 20250222
  Receipt Date: 20250222
  Transmission Date: 20250409
  Serious: Yes (Other)
  Sender: ACCORD
  Company Number: None

PATIENT
  Age: 67 Year
  Sex: Female
  Weight: 64 kg

DRUGS (16)
  1. PRASUGREL [Suspect]
     Active Substance: PRASUGREL
     Indication: Product used for unknown indication
     Dates: start: 20190408
  2. SODIUM ALGINATE [Concomitant]
     Active Substance: SODIUM ALGINATE
     Dates: start: 20241119, end: 20241217
  3. ISPAGHULA EXTRACT\PSYLLIUM [Concomitant]
     Active Substance: HERBALS\PLANTAGO OVATA SEED\PLANTAGO SEED
     Dates: start: 20241202, end: 20250101
  4. DOXYCYCLINE [Concomitant]
     Active Substance: DOXYCYCLINE
     Dates: start: 20241206, end: 20241207
  5. DIHYDROCODEINE [Concomitant]
     Active Substance: DIHYDROCODEINE
     Dosage: ONE TO BE TAKEN FOUR TIMES A DAY WHEN REQUIRED ...
     Dates: start: 20241209, end: 20241210
  6. ASPIRIN [Concomitant]
     Active Substance: ASPIRIN
     Dates: start: 20241101
  7. CLOPIDOGREL [Concomitant]
     Active Substance: CLOPIDOGREL BISULFATE
     Dosage: ONE TO BE TAKEN EACH DAY (WITH ASPIRIN LIFE LON...
     Dates: start: 20241101
  8. FAMOTIDINE [Concomitant]
     Active Substance: FAMOTIDINE
     Dosage: ONE TO BE TAKEN AT NIGHT ASD SDEC
     Dates: start: 20241101
  9. FOLIC ACID [Concomitant]
     Active Substance: FOLIC ACID
     Dosage: ONE DAILY OMIT THE DAY OF METHOTREXATE
     Dates: start: 20241101
  10. LANSOPRAZOLE [Concomitant]
     Active Substance: LANSOPRAZOLE
     Dosage: EACH MORNING
     Dates: start: 20241101
  11. MEBEVERINE HYDROCHLORIDE [Concomitant]
     Active Substance: MEBEVERINE HYDROCHLORIDE
     Dosage: 1 TABLET THREE TIMES A DAY PRN
     Dates: start: 20241101
  12. NEBIVOLOL [Concomitant]
     Active Substance: NEBIVOLOL
     Dates: start: 20241101
  13. ACETAMINOPHEN [Concomitant]
     Active Substance: ACETAMINOPHEN
     Indication: Rheumatoid arthritis
     Dosage: 2 FOUR TIMES A DAY FOR RA
     Dates: start: 20241101
  14. ROSUVASTATIN [Concomitant]
     Active Substance: ROSUVASTATIN
     Dates: start: 20241101
  15. METHOTREXATE [Concomitant]
     Active Substance: METHOTREXATE
     Dosage: 8 TABLETS (20MG) ONCE WEEKLY
     Dates: start: 20250129
  16. SODIUM ALGINATE [Concomitant]
     Active Substance: SODIUM ALGINATE
     Dates: start: 20250113

REACTIONS (1)
  - Increased tendency to bruise [Recovered/Resolved]
